FAERS Safety Report 15450783 (Version 3)
Quarter: 2019Q1

REPORT INFORMATION
  Report Type: Report from Study
  Country: US (occurrence: None)
  Receive Date: 20180928
  Receipt Date: 20190206
  Transmission Date: 20190417
  Serious: Yes (Other)
  Sender: FDA-Public Use
  Company Number: 201805USGW0073

PATIENT
  Age: 31 Year
  Sex: Male
  Weight: 80.3 kg

DRUGS (10)
  1. LACOSAMIDE (LACOSAMIDE) [Concomitant]
     Active Substance: LACOSAMIDE
  2. TRAZODONE [Concomitant]
     Active Substance: TRAZODONE HYDROCHLORIDE
  3. IMODIUM (LOPERAMIDE HYDROCHLORIDE) [Concomitant]
  4. EPIDIOLEX [Suspect]
     Active Substance: CANNABIDIOL
     Indication: EPILEPSY
     Dosage: 30 MG/KG, 2409 MILLIGRAM, QD, ORAL
     Route: 048
     Dates: start: 20170408, end: 20180412
  5. VALIUM [Concomitant]
     Active Substance: DIAZEPAM
  6. DIASTAT (DIAZEPAM) (DIAZEPAM) [Concomitant]
  7. LAMOTRIGINE (LAMOTRIGINE) [Concomitant]
     Active Substance: LAMOTRIGINE
  8. SINGULAIR (MONTELUKAST SODIUM) [Concomitant]
  9. TYLENOL (PARACETAMOL) (PARACETAMOL) [Concomitant]
  10. SYNTHROID [Concomitant]
     Active Substance: LEVOTHYROXINE SODIUM

REACTIONS (7)
  - Impaired healing [None]
  - Vomiting [None]
  - Respiratory tract infection [None]
  - Staphylococcal skin infection [None]
  - Decubitus ulcer [None]
  - Diarrhoea [None]
  - Bedridden [None]

NARRATIVE: CASE EVENT DATE: 20180411
